FAERS Safety Report 10739445 (Version 5)
Quarter: 2015Q2

REPORT INFORMATION
  Report Type: Spontaneous
  Country: US (occurrence: US)
  Receive Date: 20150126
  Receipt Date: 20150612
  Transmission Date: 20150821
  Serious: Yes (Hospitalization, Other)
  Sender: FDA-Public Use
  Company Number: US-GLAXOSMITHKLINE-US2015GSK008524

PATIENT
  Age: 55 Year
  Sex: Male
  Weight: 65 kg

DRUGS (3)
  1. FLOLAN [Suspect]
     Active Substance: EPOPROSTENOL SODIUM
     Indication: PULMONARY HYPERTENSION
     Dosage: 21 NG/KG/MIN CONTINUOUSLY; CONCENTRATION: 30,000 NG/ML; PUMP RATE: 84 ML/DAY; VIAL STRENGTH: 1.5 MG
     Route: 042
     Dates: start: 20140813
  2. REVATIO [Concomitant]
     Active Substance: SILDENAFIL CITRATE
  3. FLOLAN [Suspect]
     Active Substance: EPOPROSTENOL SODIUM
     Dosage: 21 NG/KG/MIN CONTINUOUSLY; CONCENTRATION: 30,000 NG/ML

REACTIONS (4)
  - Liver transplant [Recovering/Resolving]
  - Emergency care examination [Recovered/Resolved]
  - Therapeutic procedure [Recovered/Resolved]
  - Central venous catheterisation [Recovered/Resolved]

NARRATIVE: CASE EVENT DATE: 201412
